FAERS Safety Report 25319730 (Version 1)
Quarter: 2025Q2

REPORT INFORMATION
  Report Type: Spontaneous
  Country: US (occurrence: None)
  Receive Date: 20250515
  Receipt Date: 20250515
  Transmission Date: 20250716
  Serious: Yes (Other)
  Sender: FDA-CTU
  Company Number: None

PATIENT
  Age: 43 Year
  Sex: Female
  Weight: 81 kg

DRUGS (1)
  1. MONTELUKAST SODIUM [Suspect]
     Active Substance: MONTELUKAST SODIUM
     Indication: Asthma
     Dates: start: 20241104, end: 20250428

REACTIONS (6)
  - Suicidal behaviour [None]
  - Obsessive-compulsive disorder [None]
  - Behaviour disorder [None]
  - Nightmare [None]
  - Change in sustained attention [None]
  - Feeling abnormal [None]

NARRATIVE: CASE EVENT DATE: 20250421
